FAERS Safety Report 9248389 (Version 2)
Quarter: 2013Q3

REPORT INFORMATION
  Report Type: Spontaneous
  Country: FR (occurrence: FR)
  Receive Date: 20130423
  Receipt Date: 20130723
  Transmission Date: 20140515
  Serious: Yes (Hospitalization, Disabling)
  Sender: FDA-Public Use
  Company Number: FR-ABBOTT-13P-056-1078394-00

PATIENT
  Age: 57 Year
  Sex: Female
  Weight: 81 kg

DRUGS (1)
  1. HUMIRA [Suspect]
     Indication: SPINAL OSTEOARTHRITIS
     Route: 058
     Dates: start: 20130301, end: 20130401

REACTIONS (1)
  - Posterior reversible encephalopathy syndrome [Recovered/Resolved]
